FAERS Safety Report 9793188 (Version 3)
Quarter: 2014Q3

REPORT INFORMATION
  Report Type: Spontaneous
  Country: US (occurrence: US)
  Receive Date: 20140102
  Receipt Date: 20140731
  Transmission Date: 20150326
  Serious: No
  Sender: FDA-Public Use
  Company Number: US-GILEAD-2013-0090984

PATIENT
  Sex: Female

DRUGS (6)
  1. LETAIRIS [Suspect]
     Active Substance: AMBRISENTAN
     Indication: UNEVALUABLE EVENT
  2. LETAIRIS [Suspect]
     Active Substance: AMBRISENTAN
     Indication: OBESITY
  3. LETAIRIS [Suspect]
     Active Substance: AMBRISENTAN
     Indication: SLEEP APNOEA SYNDROME
  4. LETAIRIS [Suspect]
     Active Substance: AMBRISENTAN
     Indication: PULMONARY HYPERTENSION
     Route: 048
  5. LETAIRIS [Suspect]
     Active Substance: AMBRISENTAN
     Indication: HYPOXIA
  6. LETAIRIS [Suspect]
     Active Substance: AMBRISENTAN
     Indication: ASTHMA

REACTIONS (4)
  - Oedema peripheral [Unknown]
  - Peripheral swelling [Unknown]
  - Swelling face [Unknown]
  - Palpitations [Unknown]
